FAERS Safety Report 12911993 (Version 2)
Quarter: 2016Q4

REPORT INFORMATION
  Report Type: Spontaneous
  Country: US (occurrence: US)
  Receive Date: 20161104
  Receipt Date: 20161114
  Transmission Date: 20170207
  Serious: Yes (Other)
  Sender: FDA-Public Use
  Company Number: US-BAYER-2016-210230

PATIENT
  Age: 74 Year
  Sex: Male

DRUGS (2)
  1. CLARITIN [Suspect]
     Active Substance: LORATADINE
     Indication: HYPERSENSITIVITY
     Dosage: 1 DF, TID
     Route: 048
     Dates: start: 20161022, end: 20161025
  2. CLARITIN [Suspect]
     Active Substance: LORATADINE
     Indication: NASOPHARYNGITIS

REACTIONS (3)
  - Product use issue [Unknown]
  - Stent placement [None]
  - Urinary retention [Unknown]

NARRATIVE: CASE EVENT DATE: 20161022
